FAERS Safety Report 7591913-0 (Version None)
Quarter: 2011Q3

REPORT INFORMATION
  Report Type: 
  Country: None (occurrence: None)
  Receive Date: 20110706
  Receipt Date: 20110628
  Transmission Date: 20111222
  Serious: Yes (Death, Hospitalization, Other)
  Sender: FDA-Public Use
  Company Number: FR-ASTELLAS-2011EU004320

PATIENT
  Age: 63 Year
  Sex: Male

DRUGS (2)
  1. CELLCEPT [Concomitant]
     Indication: BONE MARROW TRANSPLANT
     Dosage: UNK
     Route: 065
  2. PROGRAF [Suspect]
     Indication: BONE MARROW TRANSPLANT
     Dosage: UNK
     Route: 048

REACTIONS (6)
  - CARDIAC FAILURE [None]
  - OFF LABEL USE [None]
  - PERICARDITIS [None]
  - GRAFT VERSUS HOST DISEASE [None]
  - RENAL FAILURE [None]
  - HYPERTENSIVE CRISIS [None]
